FAERS Safety Report 11024829 (Version 1)
Quarter: 2015Q2

REPORT INFORMATION
  Report Type: Spontaneous
  Country: GB (occurrence: GB)
  Receive Date: 20150414
  Receipt Date: 20150414
  Transmission Date: 20150821
  Serious: Yes (Other)
  Sender: FDA-Public Use
  Company Number: GB-TEVA-553434ACC

PATIENT
  Sex: Female

DRUGS (3)
  1. FLUVASTATIN [Suspect]
     Active Substance: FLUVASTATIN SODIUM
     Dosage: 60 MILLIGRAM DAILY;
     Route: 065
  2. FLUVASTATIN [Suspect]
     Active Substance: FLUVASTATIN SODIUM
     Dosage: 80 MILLIGRAM EVERY OTHER DAY
     Route: 065
  3. FLUVASTATIN [Suspect]
     Active Substance: FLUVASTATIN SODIUM
     Indication: PRODUCT USED FOR UNKNOWN INDICATION
     Dosage: 40 MILLIGRAM DAILY;
     Route: 065

REACTIONS (3)
  - Aortic calcification [Unknown]
  - Aortic valve calcification [Unknown]
  - Blood cholesterol increased [Unknown]
